FAERS Safety Report 24928758 (Version 2)
Quarter: 2025Q1

REPORT INFORMATION
  Report Type: Report from Study
  Country: US (occurrence: US)
  Receive Date: 20250205
  Receipt Date: 20250207
  Transmission Date: 20250408
  Serious: Yes (Other)
  Sender: NOVARTIS
  Company Number: US-002147023-NVSC2025US004222

PATIENT
  Sex: Female

DRUGS (2)
  1. KISQALI [Suspect]
     Active Substance: RIBOCICLIB
     Indication: Product used for unknown indication
     Route: 048
  2. KISQALI [Suspect]
     Active Substance: RIBOCICLIB
     Route: 048
     Dates: start: 20241231

REACTIONS (6)
  - Bladder cancer [Unknown]
  - Illness [Unknown]
  - Cough [Unknown]
  - Vomiting [Unknown]
  - Hypokinesia [Unknown]
  - Gastroenteritis viral [Unknown]
